FAERS Safety Report 14527116 (Version 1)
Quarter: 2018Q1

REPORT INFORMATION
  Report Type: Spontaneous
  Country: US (occurrence: US)
  Receive Date: 20180213
  Receipt Date: 20180213
  Transmission Date: 20180509
  Serious: Yes (Other)
  Sender: FDA-Public Use
  Company Number: US-PFIZER INC-2018056980

PATIENT
  Age: 76 Year
  Sex: Male

DRUGS (8)
  1. FLUDARABINE PHOSPHATE. [Suspect]
     Active Substance: FLUDARABINE PHOSPHATE
     Dosage: UNK UNK, 2X/DAY (DOSAGE WAS REDUCED BY 25%)
  2. CYTARABINE. [Suspect]
     Active Substance: CYTARABINE
     Indication: CHLOROMA
     Dosage: UNK, 2X/DAY (0.375 G/M2)
  3. CYTARABINE. [Suspect]
     Active Substance: CYTARABINE
     Dosage: UNK UNK, 2X/DAY (DOSAGE WAS REDUCED BY 25%)
  4. IDARUBICIN [Concomitant]
     Active Substance: IDARUBICIN
     Indication: CHLOROMA
     Dosage: UNK
  5. 5-AZACYTIDINE [Concomitant]
     Active Substance: AZACITIDINE
     Indication: TRISOMY 8
     Dosage: UNK
  6. CYTARABINE. [Suspect]
     Active Substance: CYTARABINE
     Dosage: UNK UNK, 2X/DAY (CYCLE 2 OF BIDFA)
  7. FLUDARABINE PHOSPHATE. [Suspect]
     Active Substance: FLUDARABINE PHOSPHATE
     Dosage: UNK UNK, 2X/DAY (CYCLE 2 OF BIDFA)
  8. FLUDARABINE PHOSPHATE. [Suspect]
     Active Substance: FLUDARABINE PHOSPHATE
     Indication: CHLOROMA
     Dosage: 11.25 MG/M2, 2X/DAY, (EVERY 12 H FOR 3 DAYS)

REACTIONS (3)
  - Urinary tract infection pseudomonal [Unknown]
  - Febrile neutropenia [Unknown]
  - Hydronephrosis [Unknown]
